FAERS Safety Report 7598007-9 (Version None)
Quarter: 2011Q3

REPORT INFORMATION
  Report Type: 
  Country: None (occurrence: None)
  Receive Date: 20110708
  Receipt Date: 20110630
  Transmission Date: 20111222
  Serious: Yes (Death, Life-Threatening, Hospitalization)
  Sender: FDA-Public Use
  Company Number: BE-ABBOTT-11P-013-0835531-02

PATIENT
  Sex: Female

DRUGS (19)
  1. VITAMIN B-12 [Concomitant]
     Indication: VITAMIN B12 DEFICIENCY
     Dates: start: 20110101
  2. EPSIPAM [Concomitant]
     Indication: FIBROMYALGIA
     Dates: start: 20080606
  3. MINOCYCLINE HCL [Concomitant]
     Indication: GROIN ABSCESS
  4. SPIRIVA [Concomitant]
     Indication: BRONCHITIS
     Dates: start: 20090101
  5. REDOMEX [Concomitant]
     Indication: NEURALGIA
     Dates: start: 20090101, end: 20110501
  6. SIPRALEXA [Concomitant]
     Indication: FIBROMYALGIA
     Dates: start: 20080101
  7. CYMBALTA [Concomitant]
     Indication: DEPRESSION
     Dates: start: 20100101
  8. TRAMADOL HCL [Concomitant]
     Indication: NEURALGIA
     Dates: start: 20090507
  9. MINOCYCLINE HCL [Concomitant]
     Indication: SKIN LESION
     Dates: start: 20090616, end: 20090922
  10. IBRUPROFEN [Concomitant]
     Indication: ARTHRALGIA
     Dates: start: 20100608
  11. CIPROFLOXACIN [Concomitant]
     Indication: VIITH NERVE PARALYSIS
     Dates: start: 20091201, end: 20100101
  12. SULFASALAZINE [Concomitant]
     Indication: ARTHRALGIA
     Dates: start: 20100201, end: 20100923
  13. METHOTREXATE [Concomitant]
  14. OMEPRAZOLE [Concomitant]
     Indication: CROHN'S DISEASE
     Dates: start: 20090101
  15. DIAZEPAM [Concomitant]
     Indication: ANXIETY
     Dates: start: 20100101
  16. VOLTAPATCH [Concomitant]
     Indication: ARTHRALGIA
     Dates: start: 20101118
  17. HUMIRA [Suspect]
     Indication: CROHN'S DISEASE
     Route: 058
     Dates: start: 20080916
  18. METHOTREXATE [Concomitant]
     Indication: CROHN'S DISEASE
     Dates: start: 20101118
  19. FOLIC ACID [Concomitant]
     Indication: VITAMIN SUPPLEMENTATION
     Dates: start: 20100909

REACTIONS (1)
  - LUNG NEOPLASM MALIGNANT [None]
